FAERS Safety Report 11631404 (Version 8)
Quarter: 2016Q3

REPORT INFORMATION
  Report Type: Spontaneous
  Country: CA (occurrence: CA)
  Receive Date: 20151014
  Receipt Date: 20160908
  Transmission Date: 20161109
  Serious: Yes (Hospitalization)
  Sender: FDA-Public Use
  Company Number: CA-ROCHE-1643958

PATIENT
  Sex: Female

DRUGS (16)
  1. RITUXAN [Suspect]
     Active Substance: RITUXIMAB
     Indication: RHEUMATOID ARTHRITIS
     Route: 042
  2. NAPROXEN. [Suspect]
     Active Substance: NAPROXEN
     Indication: RHEUMATOID ARTHRITIS
     Route: 065
  3. PREDNISONE. [Suspect]
     Active Substance: PREDNISONE
     Route: 048
  4. CRESTOR [Concomitant]
     Active Substance: ROSUVASTATIN CALCIUM
     Route: 065
     Dates: end: 20150910
  5. ORENCIA [Suspect]
     Active Substance: ABATACEPT
     Indication: RHEUMATOID ARTHRITIS
     Route: 065
  6. CELEXA [Concomitant]
     Active Substance: CITALOPRAM HYDROBROMIDE
  7. PLAQUENIL [Suspect]
     Active Substance: HYDROXYCHLOROQUINE SULFATE
     Indication: RHEUMATOID ARTHRITIS
     Route: 065
  8. PREDNISONE. [Suspect]
     Active Substance: PREDNISONE
     Indication: RHEUMATOID ARTHRITIS
     Route: 048
  9. SULFASALAZINE. [Suspect]
     Active Substance: SULFASALAZINE
     Indication: RHEUMATOID ARTHRITIS
     Route: 048
  10. LOSEC [Concomitant]
     Active Substance: OMEPRAZOLE
  11. ACTEMRA [Suspect]
     Active Substance: TOCILIZUMAB
     Indication: RHEUMATOID ARTHRITIS
     Route: 042
     Dates: end: 20150910
  12. REMICADE [Suspect]
     Active Substance: INFLIXIMAB
     Indication: RHEUMATOID ARTHRITIS
     Route: 065
  13. METHOTREXATE SODIUM. [Suspect]
     Active Substance: METHOTREXATE SODIUM
     Indication: PRODUCT USED FOR UNKNOWN INDICATION
     Route: 048
     Dates: end: 20150910
  14. ENBREL [Suspect]
     Active Substance: ETANERCEPT
     Indication: RHEUMATOID ARTHRITIS
     Route: 065
  15. KETOPROFEN. [Concomitant]
     Active Substance: KETOPROFEN
     Route: 065
  16. XELJANZ [Concomitant]
     Active Substance: TOFACITINIB CITRATE
     Route: 048
     Dates: start: 20151114

REACTIONS (24)
  - Nephrolithiasis [Recovered/Resolved]
  - Goitre [Unknown]
  - Musculoskeletal stiffness [Unknown]
  - Headache [Unknown]
  - Pain in extremity [Unknown]
  - Thyroid disorder [Unknown]
  - Drug ineffective [Unknown]
  - Swelling [Unknown]
  - Fatigue [Unknown]
  - Arthralgia [Unknown]
  - Arthropathy [Unknown]
  - Inflammation [Unknown]
  - Lower respiratory tract infection [Unknown]
  - Musculoskeletal pain [Unknown]
  - Cough [Unknown]
  - Joint swelling [Unknown]
  - Condition aggravated [Unknown]
  - Fine motor skill dysfunction [Unknown]
  - Nasopharyngitis [Not Recovered/Not Resolved]
  - Asthenia [Unknown]
  - Rheumatoid arthritis [Unknown]
  - Nasopharyngitis [Unknown]
  - Pain [Unknown]
  - Peripheral swelling [Unknown]
